FAERS Safety Report 4328654-9 (Version None)
Quarter: 2004Q1

REPORT INFORMATION
  Report Type: 
  Country: None (occurrence: None)
  Receive Date: 20040325
  Receipt Date: 20040318
  Transmission Date: 20041129
  Serious: Yes (Death, Hospitalization)
  Sender: FDA-Public Use
  Company Number: SAGL-ZLB/04/05/FRA

PATIENT
  Age: 90 Year
  Sex: Female

DRUGS (13)
  1. SANDOGLOBULIN [Suspect]
     Indication: DRUG USE FOR UNKNOWN INDICATION
     Dosage: 48 G, I.V.
     Route: 042
     Dates: start: 20040206, end: 20040207
  2. STAGID 800 (METFORMIN EMBONATE) [Concomitant]
  3. VASTAREL 20 (TRIMETAZIDINE HYDROCHLORIDE) [Concomitant]
  4. LASILIX 20 (FUROSEMIDE) [Concomitant]
  5. BRONCHODUAL (DUOVENT) [Concomitant]
  6. PULMICORT [Concomitant]
  7. ACTRAPID SC (INSLIN) [Concomitant]
  8. POTASSIUM (POTASSIUM) [Concomitant]
  9. B1 VITAMIN (THIAMINE HYDROCHLORIDE) [Concomitant]
  10. SOLU-MEDROL [Concomitant]
  11. ACETAMINOPHEN [Concomitant]
  12. MANNITOL [Concomitant]
  13. GLUCOSE (GLUCOSE) [Concomitant]

REACTIONS (2)
  - DEEP VEIN THROMBOSIS [None]
  - GASTROINTESTINAL HAEMORRHAGE [None]
